FAERS Safety Report 4293354-0 (Version None)
Quarter: 2004Q1

REPORT INFORMATION
  Report Type: 
  Country: None (occurrence: None)
  Receive Date: 20040210
  Receipt Date: 20040204
  Transmission Date: 20041129
  Serious: Yes (Death)
  Sender: FDA-Public Use
  Company Number: KDL018936

PATIENT
  Age: 89 Year
  Sex: Male
  Weight: 65.8 kg

DRUGS (12)
  1. PROCRIT [Suspect]
     Indication: MYELODYSPLASTIC SYNDROME
     Dosage: WEEKLY
     Dates: start: 20010101
  2. LEVOTHYROXINE SODIUM [Concomitant]
  3. ATENOLOL [Concomitant]
  4. AMLODIPINE BESYLATE [Concomitant]
  5. PAROXETINE HCL [Concomitant]
  6. POTASSIUM [Concomitant]
  7. ESOMEPRAZOLE MAGNESIUM [Concomitant]
  8. CENTRUM [Concomitant]
  9. DIGOXIN [Concomitant]
  10. OXYBUTYNIN [Concomitant]
  11. ASCORBIC ACID [Concomitant]
  12. CALCIUM [Concomitant]

REACTIONS (5)
  - CEREBROVASCULAR ACCIDENT [None]
  - FAILURE TO THRIVE [None]
  - FATIGUE [None]
  - HYPERTHYROIDISM [None]
  - PANCYTOPENIA [None]
